FAERS Safety Report 14732977 (Version 4)
Quarter: 2019Q1

REPORT INFORMATION
  Report Type: Spontaneous
  Country: FI (occurrence: FI)
  Receive Date: 20180409
  Receipt Date: 20190225
  Transmission Date: 20190417
  Serious: Yes (Other)
  Sender: FDA-Public Use
  Company Number: FI-ACCORD-065342

PATIENT
  Age: 81 Year
  Sex: Male

DRUGS (4)
  1. DOCETAXEL. [Suspect]
     Active Substance: DOCETAXEL
     Indication: METASTASES TO KIDNEY
     Dosage: BIWEEKLY
     Dates: start: 201705
  2. DEXAMETHASONE. [Concomitant]
     Active Substance: DEXAMETHASONE
     Indication: PREMEDICATION
     Dates: start: 201705
  3. CARBOPLATIN. [Concomitant]
     Active Substance: CARBOPLATIN
  4. DENOSUMAB [Concomitant]
     Active Substance: DENOSUMAB
     Indication: PREMEDICATION
     Dates: start: 201705

REACTIONS (8)
  - Condition aggravated [Recovering/Resolving]
  - Neuropathy peripheral [Unknown]
  - Onycholysis [Unknown]
  - Cutaneous lupus erythematosus [Unknown]
  - Actinic keratosis [Recovering/Resolving]
  - Off label use [Unknown]
  - Alopecia [Unknown]
  - Oedema peripheral [Unknown]
